FAERS Safety Report 8266705-X (Version None)
Quarter: 2012Q2

REPORT INFORMATION
  Report Type: 
  Country: None (occurrence: None)
  Receive Date: 20120409
  Receipt Date: 20120403
  Transmission Date: 20120825
  Serious: Yes (Life-Threatening, Hospitalization)
  Sender: FDA-Public Use
  Company Number: DE-BRISTOL-MYERS SQUIBB COMPANY-15138183

PATIENT
  Age: 59 Year
  Sex: Female
  Weight: 45 kg

DRUGS (7)
  1. DEXAMETHASONE [Concomitant]
  2. VITAMIN B-12 [Concomitant]
  3. TRIAMTERENE AND HYDROCHLOROTHIAZIDE [Concomitant]
     Indication: HYPERTENSION
     Dates: end: 20100602
  4. CETUXIMAB [Suspect]
     Indication: HEAD AND NECK CANCER
     Dosage: 250MG/M2 WK;IV;UNK-02JUN2010(INT);LST DOSE 26MY10;DAY 1 CYCLE 1 LODG DSE; RESTT: 24JUN2010
     Route: 065
     Dates: start: 20100526
  5. CISPLATIN [Suspect]
     Indication: HEAD AND NECK CANCER
     Dosage: LAST INF ON 26MAY2010; INTERRUPTED ON 02JUN2010(8D),RESTART ON 24-JUN10,DOSE REDUCED TO 25%
     Route: 042
     Dates: start: 20100526
  6. ALIMTA [Suspect]
     Indication: HEAD AND NECK CANCER
     Dosage: LAST INF ON 26MAY2010;1D INTERRUPTED ON 02JUN2010; 8D,RESTART ON 24JUN10,DOSE REDUCED TO 25%
     Route: 042
     Dates: start: 20100526
  7. FOLIC ACID [Concomitant]

REACTIONS (1)
  - HYPONATRAEMIA [None]
